FAERS Safety Report 15344282 (Version 1)
Quarter: 2018Q3

REPORT INFORMATION
  Report Type: Spontaneous
  Country: US (occurrence: US)
  Receive Date: 20180903
  Receipt Date: 20180903
  Transmission Date: 20181010
  Serious: Yes (Hospitalization)
  Sender: FDA-Public Use
  Company Number: US-PFIZER INC-2018350060

PATIENT
  Age: 49 Year
  Sex: Female

DRUGS (5)
  1. CHANTIX [Suspect]
     Active Substance: VARENICLINE TARTRATE
     Indication: SMOKING CESSATION THERAPY
     Dosage: UNK
  2. TESTOSTERONE. [Concomitant]
     Active Substance: TESTOSTERONE
     Indication: HYSTERECTOMY
     Dosage: UNK
  3. ESTRADIOL. [Concomitant]
     Active Substance: ESTRADIOL
     Indication: HYSTERECTOMY
     Dosage: UNK
  4. PROGESTIN [Concomitant]
     Active Substance: PROGESTERONE
     Indication: HYSTERECTOMY
     Dosage: UNK
  5. LIDOCAINE. [Concomitant]
     Active Substance: LIDOCAINE
     Dosage: UNK

REACTIONS (2)
  - Drug administration error [Unknown]
  - Mental disorder [Unknown]
